FAERS Safety Report 11771783 (Version 1)
Quarter: 2015Q4

REPORT INFORMATION
  Report Type: Spontaneous
  Country: US (occurrence: None)
  Receive Date: 20151123
  Receipt Date: 20151123
  Transmission Date: 20160304
  Serious: Yes (Hospitalization, Disabling)
  Sender: FDA-Public Use
  Company Number: None

PATIENT
  Age: 85 Year
  Sex: Male
  Weight: 96.62 kg

DRUGS (11)
  1. SELENIUM [Concomitant]
     Active Substance: SELENIUM
  2. RED YEAST RICE [Concomitant]
     Active Substance: DIETARY SUPPLEMENT
  3. CARVEDILOL. [Concomitant]
     Active Substance: CARVEDILOL
  4. OMEGA 3 [Concomitant]
     Active Substance: OMEGA-3 FATTY ACIDS
  5. SPIRONOLACTONE. [Concomitant]
     Active Substance: SPIRONOLACTONE
  6. ZINC [Concomitant]
     Active Substance: ZINC\ZINC CHLORIDE
  7. ENTRESTO [Suspect]
     Active Substance: SACUBITRIL\VALSARTAN
     Indication: CARDIAC DISORDER
     Route: 048
     Dates: start: 20151008, end: 20151010
  8. POTASSIUM CL ER [Concomitant]
  9. FUROSEMIDE. [Concomitant]
     Active Substance: FUROSEMIDE
  10. COQ 10 [Concomitant]
     Active Substance: UBIDECARENONE
  11. CALCIUM 600 MG + D3 [Concomitant]

REACTIONS (5)
  - Hypotension [None]
  - Blood potassium decreased [None]
  - Loss of consciousness [None]
  - Blood sodium decreased [None]
  - Asthenia [None]

NARRATIVE: CASE EVENT DATE: 20151010
